FAERS Safety Report 7092429-0 (Version None)
Quarter: 2010Q4

REPORT INFORMATION
  Report Type: 
  Country: None (occurrence: None)
  Receive Date: 20101110
  Receipt Date: 20100105
  Transmission Date: 20110411
  Serious: Yes (Other)
  Sender: FDA-Public Use
  Company Number: US-ASTRAZENECA-2009UW18034

PATIENT
  Sex: Female
  Weight: 76.2 kg

DRUGS (16)
  1. SEROQUEL [Suspect]
     Indication: PANIC DISORDER
     Dosage: 100 MG TO 300 MG
     Route: 048
     Dates: start: 20020320
  2. SEROQUEL [Suspect]
     Indication: AGORAPHOBIA
     Dosage: 100 MG TO 300 MG
     Route: 048
     Dates: start: 20020320
  3. SEROQUEL [Suspect]
     Indication: INSOMNIA
     Dosage: 100 MG TO 300 MG
     Route: 048
     Dates: start: 20020320
  4. DIAZEPAM [Concomitant]
     Dates: start: 20020821
  5. ACIPHEX [Concomitant]
     Dates: start: 20020226
  6. AVELOX [Concomitant]
     Dates: start: 20020315
  7. FLUMADINE [Concomitant]
     Dates: start: 20020315
  8. KETOCONAZOLE [Concomitant]
     Dates: start: 20020315
  9. ALLEGRA D 24 HOUR [Concomitant]
     Dates: start: 20020315
  10. ZOLOFT [Concomitant]
     Dates: start: 20020320
  11. LAMICTAL [Concomitant]
     Dates: start: 20020711
  12. SULFAMETHOXAZOLE [Concomitant]
     Dates: start: 20020819
  13. IBUPROFEN [Concomitant]
     Dates: start: 20020819
  14. WELLBUTRIN SR [Concomitant]
     Dates: start: 20021113
  15. RISPERDAL [Concomitant]
  16. CYMBALTA [Concomitant]

REACTIONS (2)
  - NEUROPATHY PERIPHERAL [None]
  - TYPE 2 DIABETES MELLITUS [None]
